FAERS Safety Report 5240457-X (Version None)
Quarter: 2007Q1

REPORT INFORMATION
  Report Type: 
  Country: None (occurrence: None)
  Receive Date: 20061208
  Receipt Date: 20050414
  Transmission Date: 20070707
  Serious: Yes (Other)
  Sender: FDA-Public Use
  Company Number: 2005UW05782

PATIENT
  Age: 52 Year
  Sex: Female
  Weight: 72.574 kg

DRUGS (5)
  1. CRESTOR [Suspect]
     Indication: HYPERCHOLESTEROLAEMIA
     Dosage: 20 MG QD PO
     Route: 048
     Dates: start: 20050201
  2. ZETIA [Concomitant]
  3. ACCUPRIL [Concomitant]
  4. PAXIL [Concomitant]
  5. KLONOPIN [Concomitant]

REACTIONS (1)
  - POLLAKIURIA [None]
